FAERS Safety Report 10673886 (Version 5)
Quarter: 2017Q2

REPORT INFORMATION
  Report Type: Report from Study
  Country: DE (occurrence: DE)
  Receive Date: 20141224
  Receipt Date: 20170621
  Transmission Date: 20170829
  Serious: Yes (Hospitalization, Other)
  Sender: FDA-Public Use
  Company Number: DE-BRISTOL-MYERS SQUIBB COMPANY-21444005

PATIENT
  Age: 80 Year
  Sex: Male

DRUGS (5)
  1. DASATINIB [Suspect]
     Active Substance: DASATINIB
     Indication: PRODUCT USED FOR UNKNOWN INDICATION
     Dosage: 80 MG, UNK
     Route: 065
     Dates: start: 20131105, end: 20150706
  2. HYDROXYUREA. [Suspect]
     Active Substance: HYDROXYUREA
     Indication: CHRONIC MYELOID LEUKAEMIA
     Dosage: UNK
     Route: 065
     Dates: start: 20130809, end: 20130811
  3. IMATINIB MESILATE [Suspect]
     Active Substance: IMATINIB MESYLATE
     Indication: CHRONIC MYELOID LEUKAEMIA
     Dosage: 400 MG, QD
     Route: 065
  4. DASATINIB [Suspect]
     Active Substance: DASATINIB
     Indication: CHRONIC MYELOID LEUKAEMIA
     Dosage: 05-NOV-2013 80MG.
     Route: 065
     Dates: start: 20130927, end: 20131104
  5. DASATINIB [Suspect]
     Active Substance: DASATINIB
     Indication: PRODUCT USED FOR UNKNOWN INDICATION
     Dosage: 50 MG/KG, UNK
     Route: 065
     Dates: start: 20150707, end: 20160706

REACTIONS (11)
  - Pain in extremity [Unknown]
  - Hyperchromic anaemia [Recovered/Resolved]
  - Myalgia [Unknown]
  - Haemothorax [Recovered/Resolved]
  - Oedema [Unknown]
  - Arthralgia [Unknown]
  - Anaemia [Not Recovered/Not Resolved]
  - Cardiac failure [Unknown]
  - Pleural effusion [Recovered/Resolved]
  - Infection [Unknown]
  - Gangrene [Recovered/Resolved]

NARRATIVE: CASE EVENT DATE: 20140701
